FAERS Safety Report 7501894-3 (Version None)
Quarter: 2011Q2

REPORT INFORMATION
  Report Type: 
  Country: None (occurrence: None)
  Receive Date: 20110523
  Receipt Date: 20110523
  Transmission Date: 20111010
  Serious: Yes (Other)
  Sender: FDA-Public Use
  Company Number: None

PATIENT
  Sex: Male
  Weight: 95.2554 kg

DRUGS (2)
  1. ABILIFY [Suspect]
     Indication: BIPOLAR DISORDER
     Dosage: 10MG ONCE A DAY 1 TABLET
     Dates: start: 20100111
  2. ABILIFY [Suspect]
     Indication: BIPOLAR DISORDER
     Dosage: 2MG ONCE A DAY 1 TABLET
     Dates: start: 20091023, end: 20091221

REACTIONS (1)
  - ALOPECIA AREATA [None]
